FAERS Safety Report 15569746 (Version 2)
Quarter: 2018Q4

REPORT INFORMATION
  Report Type: Spontaneous
  Country: US (occurrence: US)
  Receive Date: 20181031
  Receipt Date: 20181123
  Transmission Date: 20190205
  Serious: Yes (Hospitalization)
  Sender: FDA-Public Use
  Company Number: US-PFIZER INC-2018441211

PATIENT
  Age: 71 Year
  Sex: Female

DRUGS (2)
  1. SUTENT [Suspect]
     Active Substance: SUNITINIB MALATE
     Indication: GASTROINTESTINAL STROMAL TUMOUR
     Dosage: 37.5 MG, DAILY
  2. SUTENT [Suspect]
     Active Substance: SUNITINIB MALATE
     Dosage: 20 MG, 1X/DAY(1 IN EVENING)

REACTIONS (5)
  - Fatigue [Recovering/Resolving]
  - Weight decreased [Unknown]
  - Tooth fracture [Recovered/Resolved]
  - Stomatitis [Recovering/Resolving]
  - Device failure [Recovered/Resolved]
